FAERS Safety Report 5948103-4 (Version None)
Quarter: 2008Q4

REPORT INFORMATION
  Report Type: 
  Country: None (occurrence: None)
  Receive Date: 20081107
  Receipt Date: 20081029
  Transmission Date: 20090506
  Serious: Yes (Hospitalization)
  Sender: FDA-Public Use
  Company Number: 100#03#2008-05511

PATIENT
  Sex: Female

DRUGS (10)
  1. AZITHROMYCIN [Suspect]
     Indication: LOWER RESPIRATORY TRACT INFECTION
     Dosage: 250 MG TWICE DAILY ORAL
     Route: 048
     Dates: start: 20080929, end: 20081010
  2. AMLODIPINE [Concomitant]
  3. ACETYLSALICYLIC ACID SRT [Concomitant]
  4. DIGOXIN [Concomitant]
  5. FUROSEMIDE [Concomitant]
  6. LANSOPRAZOLE [Concomitant]
  7. LOSARTAN POTASSIUM [Concomitant]
  8. SALBUTAMOL (SALBUTAMOL) [Concomitant]
  9. SERETIDE (FLUTICASONE, SALMETEROL, ) [Concomitant]
  10. SIMVASTATIN [Concomitant]

REACTIONS (1)
  - RENAL FAILURE [None]
